FAERS Safety Report 23573581 (Version 4)
Quarter: 2024Q2

REPORT INFORMATION
  Report Type: Spontaneous
  Country: DE (occurrence: DE)
  Receive Date: 20240228
  Receipt Date: 20240510
  Transmission Date: 20240716
  Serious: Yes (Hospitalization, Other)
  Sender: FDA-Public Use
  Company Number: DE-JNJFOC-20240213184

PATIENT
  Age: 8 Decade
  Sex: Male
  Weight: 82 kg

DRUGS (3)
  1. LENALIDOMIDE [Suspect]
     Active Substance: LENALIDOMIDE
     Indication: Plasma cell myeloma
     Dosage: UNK (LAST DOSE BEFORE EVENT: 7.5 MG)
     Route: 065
  2. DARATUMUMAB [Suspect]
     Active Substance: DARATUMUMAB
     Indication: Plasma cell myeloma
     Dosage: 1312 MILLIGRAM (LINE 1 THERAPYDATE OF LAST DOE BEFORE EVENT: 19.01.2024)
     Route: 042
     Dates: start: 20211112, end: 20240119
  3. DEXAMETHASONE [Suspect]
     Active Substance: DEXAMETHASONE
     Indication: Plasma cell myeloma
     Dosage: 20 MILLIGRAM (LAST DOSE BEFORE EVENT: 20 MG)
     Route: 065
     Dates: start: 20211112, end: 20230317

REACTIONS (3)
  - COVID-19 pneumonia [Not Recovered/Not Resolved]
  - Atrial fibrillation [Not Recovered/Not Resolved]
  - Cytopenia [Unknown]

NARRATIVE: CASE EVENT DATE: 20240129
